FAERS Safety Report 14360655 (Version 2)
Quarter: 2018Q2

REPORT INFORMATION
  Report Type: Spontaneous
  Country: GR (occurrence: GR)
  Receive Date: 20180106
  Receipt Date: 20180507
  Transmission Date: 20180711
  Serious: Yes (Hospitalization, Other)
  Sender: FDA-Public Use
  Company Number: GR-MYLANLABS-2018M1001120

PATIENT
  Age: 72 Year
  Sex: Female

DRUGS (8)
  1. VALGANCICLOVIR. [Concomitant]
     Active Substance: VALGANCICLOVIR
     Indication: ANTIFUNGAL PROPHYLAXIS
     Dosage: UNK
     Route: 065
  2. TACROLIMUS. [Suspect]
     Active Substance: TACROLIMUS
     Indication: IMMUNOSUPPRESSION
     Dosage: SERUM LEVELS, 8.8 NG/ML
  3. IMMUNOGLOBULIN ANTI HUMAN T-LYMPHOCYTE [Suspect]
     Active Substance: THYMOCYTE IMMUNE GLOBULIN NOS
     Indication: TRANSPLANT REJECTION
  4. SULFAMETHOXAZOLE, TRIMETHOPRIM, BROMHEXINE HY [Concomitant]
     Indication: ANTIFUNGAL PROPHYLAXIS
     Dosage: UNK
  5. SULFAMETHOXAZOLE, TRIMETHOPRIM, BROMHEXINE HY [Concomitant]
     Indication: ANTIVIRAL PROPHYLAXIS
  6. MYCOPHENOLATE MOFETIL. [Suspect]
     Active Substance: MYCOPHENOLATE MOFETIL
     Indication: IMMUNOSUPPRESSION
     Dosage: 720 MG, QD
  7. METHYLPREDNISOLONE. [Suspect]
     Active Substance: METHYLPREDNISOLONE
     Indication: IMMUNOSUPPRESSION
     Dosage: 4 MG, QD
  8. VALGANCICLOVIR. [Concomitant]
     Active Substance: VALGANCICLOVIR
     Indication: ANTIVIRAL PROPHYLAXIS

REACTIONS (12)
  - White blood cell count increased [Recovered/Resolved]
  - Musculoskeletal pain [Recovered/Resolved]
  - Hyponatraemia [Recovered/Resolved]
  - Inappropriate antidiuretic hormone secretion [Recovered/Resolved]
  - C-reactive protein increased [Recovered/Resolved]
  - Cough [Recovered/Resolved]
  - Blood osmolarity decreased [Recovered/Resolved]
  - Muscle abscess [Recovered/Resolved]
  - Nocardiosis [Recovered/Resolved]
  - Red blood cell sedimentation rate increased [Recovered/Resolved]
  - Chest pain [Recovered/Resolved]
  - Musculoskeletal discomfort [Recovered/Resolved]
